FAERS Safety Report 23511389 (Version 1)
Quarter: 2024Q1

REPORT INFORMATION
  Report Type: Spontaneous
  Country: GB (occurrence: GB)
  Receive Date: 20240212
  Receipt Date: 20240212
  Transmission Date: 20240410
  Serious: Yes (Other)
  Sender: FDA-Public Use
  Company Number: GB-CELLTRION HEALTHCARE HUNGARY KFT-2024GB002740

PATIENT

DRUGS (2)
  1. REMICADE [Suspect]
     Active Substance: INFLIXIMAB
     Indication: Colitis ulcerative
     Route: 041
  2. INFLIXIMAB [Suspect]
     Active Substance: INFLIXIMAB
     Indication: Colitis ulcerative
     Dosage: 120 MG PREFILLED PEN
     Route: 058
     Dates: start: 202401

REACTIONS (5)
  - Rheumatoid arthritis [Unknown]
  - C-reactive protein increased [Unknown]
  - Sensory loss [Unknown]
  - Infection [Unknown]
  - Inflammation [Unknown]
